FAERS Safety Report 14176981 (Version 1)
Quarter: 2017Q4

REPORT INFORMATION
  Report Type: Spontaneous
  Country: US (occurrence: US)
  Receive Date: 20171110
  Receipt Date: 20171110
  Transmission Date: 20180321
  Serious: No
  Sender: FDA-Public Use
  Company Number: US-009507513-1710USA008959

PATIENT
  Sex: Female

DRUGS (1)
  1. BELSOMRA [Suspect]
     Active Substance: SUVOREXANT
     Indication: INSOMNIA
     Dosage: 15 MG ONCE DAILY IN EVENING
     Route: 048
     Dates: end: 2017

REACTIONS (1)
  - Sedation [Unknown]

NARRATIVE: CASE EVENT DATE: 2017
